FAERS Safety Report 12479780 (Version 1)
Quarter: 2016Q2

REPORT INFORMATION
  Report Type: Spontaneous
  Country: US (occurrence: None)
  Receive Date: 20160617
  Receipt Date: 20160617
  Transmission Date: 20160815
  Serious: No
  Sender: FDA-Public Use
  Company Number: None

PATIENT
  Age: 31 Year
  Sex: Female

DRUGS (1)
  1. HUMIRA [Suspect]
     Active Substance: ADALIMUMAB
     Dosage: 40MG EVERY 14 DAYS SUBQ
     Route: 058
     Dates: start: 20140715

REACTIONS (4)
  - Hypoaesthesia [None]
  - Alopecia [None]
  - Paraesthesia [None]
  - Multiple sclerosis [None]
